FAERS Safety Report 10866079 (Version 3)
Quarter: 2015Q1

REPORT INFORMATION
  Report Type: Report from Study
  Country: ES (occurrence: ES)
  Receive Date: 20150225
  Receipt Date: 20150317
  Transmission Date: 20150721
  Serious: Yes (Hospitalization)
  Sender: FDA-Public Use
  Company Number: ES-ROCHE-1543034

PATIENT
  Age: 70 Year
  Sex: Male
  Weight: 72 kg

DRUGS (7)
  1. METHYLPREDNISOLONE. [Suspect]
     Active Substance: METHYLPREDNISOLONE
     Route: 048
  2. TOCILIZUMAB [Suspect]
     Active Substance: TOCILIZUMAB
     Indication: RHEUMATOID ARTHRITIS
     Dosage: TOTAL MONTHLY DOSE: 576 MG, NEXT DOSE RECEIVED ON 17/OCT/2014 AND 14/NOV/2014
     Route: 042
     Dates: start: 20140918
  3. DICLOFENAC [Suspect]
     Active Substance: DICLOFENAC
     Route: 048
  4. ALENDRONIC ACID [Concomitant]
     Active Substance: ALENDRONIC ACID
     Indication: OSTEOPOROSIS
  5. DICLOFENAC [Suspect]
     Active Substance: DICLOFENAC
     Indication: RHEUMATOID ARTHRITIS
     Route: 048
     Dates: start: 201408, end: 20141125
  6. METHYLPREDNISOLONE. [Suspect]
     Active Substance: METHYLPREDNISOLONE
     Indication: RHEUMATOID ARTHRITIS
     Dosage: ALTERNATE DAYS
     Route: 048
     Dates: start: 201408
  7. PANTOPRAZOLE [Concomitant]
     Active Substance: PANTOPRAZOLE SODIUM
     Route: 048

REACTIONS (1)
  - Duodenal perforation [Recovered/Resolved]

NARRATIVE: CASE EVENT DATE: 20141122
